FAERS Safety Report 12420077 (Version 3)
Quarter: 2016Q3

REPORT INFORMATION
  Report Type: Spontaneous
  Country: US (occurrence: US)
  Receive Date: 20160531
  Receipt Date: 20160722
  Transmission Date: 20161109
  Serious: No
  Sender: FDA-Public Use
  Company Number: US-ACTELION-A-US2016-134719

PATIENT
  Age: 32 Year
  Sex: Female

DRUGS (4)
  1. AMBRISENTAN [Suspect]
     Active Substance: AMBRISENTAN
     Indication: PRODUCT USED FOR UNKNOWN INDICATION
     Dosage: 10 MG, QD
     Route: 048
     Dates: start: 20150522
  2. WARFARIN [Concomitant]
     Active Substance: WARFARIN
  3. UPTRAVI [Suspect]
     Active Substance: SELEXIPAG
     Indication: PRODUCT USED FOR UNKNOWN INDICATION
     Dosage: 1400 MCG, BID
     Route: 048
     Dates: start: 2016
  4. TREPROSTINIL DIOLAMIN [Concomitant]
     Active Substance: TREPROSTINIL DIOLAMINE

REACTIONS (7)
  - Pain in extremity [Unknown]
  - Headache [Unknown]
  - Pain in jaw [Not Recovered/Not Resolved]
  - Fall [Unknown]
  - Muscular weakness [Unknown]
  - Nausea [Not Recovered/Not Resolved]
  - Migraine [Recovered/Resolved]
